FAERS Safety Report 25727078 (Version 1)
Quarter: 2025Q3

REPORT INFORMATION
  Report Type: Spontaneous
  Country: GB (occurrence: GB)
  Receive Date: 20250826
  Receipt Date: 20250826
  Transmission Date: 20251020
  Serious: Yes (Other)
  Sender: MYLAN
  Company Number: None

PATIENT
  Age: 79 Year
  Sex: Male
  Weight: 67 kg

DRUGS (14)
  1. ATORVASTATIN [Suspect]
     Active Substance: ATORVASTATIN
     Indication: Blood cholesterol abnormal
     Dosage: 20 MILLIGRAM, PM (ONCE A DAY AT NIGHT)
     Dates: start: 2017
  2. ATORVASTATIN [Suspect]
     Active Substance: ATORVASTATIN
     Dosage: 20 MILLIGRAM, PM (ONCE A DAY AT NIGHT)
     Route: 065
     Dates: start: 2017
  3. ATORVASTATIN [Suspect]
     Active Substance: ATORVASTATIN
     Dosage: 20 MILLIGRAM, PM (ONCE A DAY AT NIGHT)
     Route: 065
     Dates: start: 2017
  4. ATORVASTATIN [Suspect]
     Active Substance: ATORVASTATIN
     Dosage: 20 MILLIGRAM, PM (ONCE A DAY AT NIGHT)
     Dates: start: 2017
  5. RAMIPRIL [Suspect]
     Active Substance: RAMIPRIL
     Indication: Blood pressure increased
     Dosage: 2.5 MILLIGRAM, PM (ONCE A DAY AT NIGHT
     Dates: start: 201405
  6. RAMIPRIL [Suspect]
     Active Substance: RAMIPRIL
     Dosage: 2.5 MILLIGRAM, PM (ONCE A DAY AT NIGHT
     Route: 065
     Dates: start: 201405
  7. RAMIPRIL [Suspect]
     Active Substance: RAMIPRIL
     Dosage: 2.5 MILLIGRAM, PM (ONCE A DAY AT NIGHT
     Route: 065
     Dates: start: 201405
  8. RAMIPRIL [Suspect]
     Active Substance: RAMIPRIL
     Dosage: 2.5 MILLIGRAM, PM (ONCE A DAY AT NIGHT
     Dates: start: 201405
  9. FINASTERIDE [Suspect]
     Active Substance: FINASTERIDE
     Indication: Benign prostatic hyperplasia
     Dosage: 5 MILLIGRAM, PM (ONCE A DAY AT NIGHT)
     Dates: start: 202309
  10. FINASTERIDE [Suspect]
     Active Substance: FINASTERIDE
     Dosage: 5 MILLIGRAM, PM (ONCE A DAY AT NIGHT)
     Route: 065
     Dates: start: 202309
  11. FINASTERIDE [Suspect]
     Active Substance: FINASTERIDE
     Dosage: 5 MILLIGRAM, PM (ONCE A DAY AT NIGHT)
     Route: 065
     Dates: start: 202309
  12. FINASTERIDE [Suspect]
     Active Substance: FINASTERIDE
     Dosage: 5 MILLIGRAM, PM (ONCE A DAY AT NIGHT)
     Dates: start: 202309
  13. RAMIPRIL [Concomitant]
     Active Substance: RAMIPRIL
     Indication: Blood pressure increased
     Route: 065
  14. RAMIPRIL [Concomitant]
     Active Substance: RAMIPRIL

REACTIONS (1)
  - Erectile dysfunction [Not Recovered/Not Resolved]

NARRATIVE: CASE EVENT DATE: 20240301
